FAERS Safety Report 7176883-1 (Version None)
Quarter: 2010Q4

REPORT INFORMATION
  Report Type: 
  Country: None (occurrence: None)
  Receive Date: 20101220
  Receipt Date: 20101213
  Transmission Date: 20110411
  Serious: Yes (Life-Threatening, Hospitalization, Other)
  Sender: FDA-Public Use
  Company Number: JP-NOVOPROD-319494

PATIENT
  Age: 76 Year
  Sex: Female
  Weight: 56 kg

DRUGS (18)
  1. VICTOZA [Suspect]
     Indication: TYPE 2 DIABETES MELLITUS
     Dosage: 0.3 MG, QD
     Route: 058
     Dates: start: 20100730
  2. VICTOZA [Suspect]
     Dosage: 0.6 MG, QD
     Route: 048
     Dates: start: 20100806
  3. VICTOZA [Suspect]
     Dosage: 0.9 MG, QD
     Route: 048
     Dates: start: 20100819
  4. NOVORAPID 30 MIX CHU FLEXPEN [Suspect]
     Indication: PRODUCT USED FOR UNKNOWN INDICATION
  5. ARGAMATE [Suspect]
     Indication: RENAL FAILURE CHRONIC
     Dosage: 25 MG, QD
     Route: 048
     Dates: end: 20101122
  6. RASILEZ                            /01763601/ [Suspect]
     Dosage: 150 MG, QD
     Route: 048
     Dates: start: 20101106, end: 20101122
  7. ALDACTONE [Suspect]
     Indication: OEDEMA
     Dosage: 25 MG, QD
     Route: 048
     Dates: start: 20101022, end: 20101122
  8. OLMETEC [Concomitant]
     Dosage: 40 MG, QD
     Route: 048
  9. ATELEC [Concomitant]
     Dosage: 20 MG, QD
     Route: 048
  10. ARICEPT [Concomitant]
     Dosage: 5 MG, QD
     Route: 048
  11. LASIX [Concomitant]
     Dosage: 80 MG, QD
     Route: 048
  12. ZYLORIC [Concomitant]
     Dosage: 200 MG, QD
     Route: 048
  13. PLETAL [Concomitant]
     Dosage: 100 MG, QD
     Route: 048
  14. FERROMIA                           /00023516/ [Concomitant]
     Dosage: 100 MG, QD
     Route: 048
  15. PROCYLIN [Concomitant]
     Dosage: 60 MG, QD
     Route: 048
  16. FLUPHENAZINE [Concomitant]
     Dosage: 6 MG, QD
     Route: 048
  17. CARDENALIN [Concomitant]
     Dosage: 4 MG, QD
     Route: 048
  18. TOLBUTAMIDE [Concomitant]
     Dosage: 0.25 MG, UNK
     Dates: start: 20100908, end: 20101106

REACTIONS (5)
  - CARDIAC ARREST [None]
  - DECREASED APPETITE [None]
  - DEPRESSED LEVEL OF CONSCIOUSNESS [None]
  - HYPOGLYCAEMIA [None]
  - HYPOKALAEMIA [None]
